FAERS Safety Report 10433671 (Version 1)
Quarter: 2014Q3

REPORT INFORMATION
  Report Type: Spontaneous
  Country: NL (occurrence: NL)
  Receive Date: 20140905
  Receipt Date: 20140905
  Transmission Date: 20150326
  Serious: Yes (Hospitalization)
  Sender: FDA-Public Use
  Company Number: PHHY2014NL110383

PATIENT
  Sex: Female

DRUGS (2)
  1. EFAVIRENZ [Interacting]
     Active Substance: EFAVIRENZ
     Dosage: 600 MG, QD
  2. ERGOTAMINE TARTRATE [Suspect]
     Active Substance: ERGOTAMINE TARTRATE

REACTIONS (4)
  - Drug interaction [Unknown]
  - Hypotension [Recovered/Resolved]
  - Peripheral ischaemia [Recovered/Resolved]
  - Ergot poisoning [Recovered/Resolved]
